FAERS Safety Report 11340702 (Version 1)
Quarter: 2015Q3

REPORT INFORMATION
  Report Type: Spontaneous
  Country: US (occurrence: None)
  Receive Date: 20150803
  Receipt Date: 20150803
  Transmission Date: 20151125
  Serious: No
  Sender: FDA-Public Use
  Company Number: None

PATIENT
  Age: 74 Year
  Sex: Female

DRUGS (1)
  1. INSULIN GLARGINE [Suspect]
     Active Substance: INSULIN GLARGINE
     Indication: HYPERGLYCAEMIA
     Dosage: 40 UNITS
     Route: 058
     Dates: start: 20140901, end: 20140916

REACTIONS (4)
  - Drug prescribing error [None]
  - Tachypnoea [None]
  - Hyperhidrosis [None]
  - Blood glucose decreased [None]

NARRATIVE: CASE EVENT DATE: 20140912
